FAERS Safety Report 25250345 (Version 1)
Quarter: 2025Q2

REPORT INFORMATION
  Report Type: Spontaneous
  Country: DK (occurrence: DK)
  Receive Date: 20250429
  Receipt Date: 20250429
  Transmission Date: 20250717
  Serious: Yes (Life-Threatening, Other)
  Sender: BOEHRINGER INGELHEIM
  Company Number: None

PATIENT
  Age: 77 Year
  Sex: Male
  Weight: 65 kg

DRUGS (3)
  1. JARDIANCE [Suspect]
     Active Substance: EMPAGLIFLOZIN
     Indication: Diabetes mellitus
     Dates: start: 20230420, end: 20250322
  2. AMOXICILLINUM [Concomitant]
     Indication: Urinary tract infection
     Dates: start: 202504, end: 202504
  3. NITROFURANTOIN [Concomitant]
     Active Substance: NITROFURANTOIN
     Indication: Urinary tract infection
     Dates: start: 202504, end: 202504

REACTIONS (3)
  - Septic shock [Unknown]
  - Fungal sepsis [Recovering/Resolving]
  - Fungal cystitis [Unknown]

NARRATIVE: CASE EVENT DATE: 20250101
